FAERS Safety Report 22166367 (Version 1)
Quarter: 2023Q1

REPORT INFORMATION
  Report Type: Spontaneous
  Country: US (occurrence: None)
  Receive Date: 20230331
  Receipt Date: 20230331
  Transmission Date: 20230417
  Serious: Yes (Hospitalization)
  Sender: FDA-Public Use
  Company Number: None

PATIENT
  Age: 71 Year
  Sex: Female
  Weight: 69.9 kg

DRUGS (16)
  1. WARFARIN [Suspect]
     Active Substance: WARFARIN
     Dosage: OTHER FREQUENCY : QD X 7.5 MG TUTHSA;?
     Route: 048
  2. METFORMIN [Concomitant]
     Active Substance: METFORMIN HYDROCHLORIDE
  3. ATORVASTATIN [Concomitant]
     Active Substance: ATORVASTATIN
  4. OMEPRAZOLE [Concomitant]
     Active Substance: OMEPRAZOLE
  5. GABAPENTIN [Concomitant]
     Active Substance: GABAPENTIN
  6. ALENDRONATE [Concomitant]
     Active Substance: ALENDRONATE SODIUM
  7. METOPROLOL [Concomitant]
     Active Substance: METOPROLOL
  8. LEVOTHYROXINE [Concomitant]
     Active Substance: LEVOTHYROXINE
  9. LISINOPRIL [Concomitant]
     Active Substance: LISINOPRIL
  10. POTASSIUM CHLORIDE [Concomitant]
     Active Substance: POTASSIUM CHLORIDE
  11. EZETIMIBE [Concomitant]
     Active Substance: EZETIMIBE
  12. FUROSEMIDE [Concomitant]
     Active Substance: FUROSEMIDE
  13. ONDANSETRON [Concomitant]
     Active Substance: ONDANSETRON
  14. LETROZOLE [Concomitant]
     Active Substance: LETROZOLE
  15. BUPROPION [Concomitant]
     Active Substance: BUPROPION
  16. FLUOXETINE [Concomitant]
     Active Substance: FLUOXETINE HYDROCHLORIDE

REACTIONS (5)
  - Gastrointestinal haemorrhage [None]
  - Anaemia [None]
  - Anticoagulation drug level above therapeutic [None]
  - Decreased activity [None]
  - Decreased appetite [None]

NARRATIVE: CASE EVENT DATE: 20230320
